FAERS Safety Report 18901114 (Version 3)
Quarter: 2021Q2

REPORT INFORMATION
  Report Type: Spontaneous
  Country: BR (occurrence: BR)
  Receive Date: 20210216
  Receipt Date: 20210531
  Transmission Date: 20210717
  Serious: Yes (Life-Threatening, Other)
  Sender: FDA-Public Use
  Company Number: NVSC2021BR034311

PATIENT
  Sex: Male
  Weight: 95 kg

DRUGS (1)
  1. PARLODEL [Suspect]
     Active Substance: BROMOCRIPTINE MESYLATE
     Indication: PRODUCT USED FOR UNKNOWN INDICATION
     Dosage: 8 DF, QD
     Route: 065

REACTIONS (3)
  - Coma [Not Recovered/Not Resolved]
  - Hypoxia [Unknown]
  - Product availability issue [Unknown]
